FAERS Safety Report 7657548-6 (Version None)
Quarter: 2011Q3

REPORT INFORMATION
  Report Type: 
  Country: None (occurrence: None)
  Receive Date: 20110804
  Receipt Date: 20110726
  Transmission Date: 20111222
  Serious: Yes (Hospitalization)
  Sender: FDA-Public Use
  Company Number: FR-AMGEN-FRASP2011038733

PATIENT
  Age: 73 Year
  Sex: Female

DRUGS (8)
  1. CACIT D3 [Concomitant]
     Dosage: 2DF/ DAY
  2. METHOTREXATE SODIUM [Suspect]
     Dosage: 2.5 MG, WEEKLY
     Route: 048
     Dates: end: 20080722
  3. PREDNISONE [Suspect]
     Dosage: 5 MG, 1X/DAY
     Route: 048
  4. NEXIUM [Concomitant]
     Dosage: 20 MG, 1X/DAY
  5. ACTONEL [Concomitant]
     Dosage: 35 MG, WEEKLY
  6. FOLIC ACID [Concomitant]
     Dosage: 5 MG, WEEKLY
  7. ENBREL [Suspect]
     Indication: RHEUMATOID ARTHRITIS
     Dosage: 50 MG, QWK
  8. ACETAMINOPHEN AND TRAMADOL HCL [Concomitant]
     Dosage: 1 TO 2 DF EVERY 6 HOURS

REACTIONS (1)
  - PNEUMOCYSTIS JIROVECI PNEUMONIA [None]
